FAERS Safety Report 6303996-6 (Version None)
Quarter: 2009Q3

REPORT INFORMATION
  Report Type: 
  Country: None (occurrence: None)
  Receive Date: 20090810
  Receipt Date: 20090810
  Transmission Date: 20100115
  Serious: Yes (Other)
  Sender: FDA-Public Use
  Company Number: None

PATIENT
  Age: 58 Year
  Sex: Female
  Weight: 63.5036 kg

DRUGS (1)
  1. ANDROGEL [Suspect]
     Indication: LIBIDO DECREASED
     Dosage: SMALL AMOUNT DAILY CUTANEOUS
     Route: 003
     Dates: start: 20090304, end: 20090317

REACTIONS (2)
  - ALANINE AMINOTRANSFERASE INCREASED [None]
  - ASPARTATE AMINOTRANSFERASE INCREASED [None]
